FAERS Safety Report 4418125-3 (Version None)
Quarter: 2004Q3

REPORT INFORMATION
  Report Type: 
  Country: None (occurrence: None)
  Receive Date: 20040809
  Receipt Date: 20040616
  Transmission Date: 20050211
  Serious: Yes (Other)
  Sender: FDA-Public Use
  Company Number: 200412067JP

PATIENT
  Age: 62 Year
  Sex: Female
  Weight: 60 kg

DRUGS (10)
  1. KETEK [Suspect]
     Indication: SINUSITIS
     Route: 048
     Dates: start: 20040608, end: 20040608
  2. TAKEPRON [Concomitant]
     Indication: GASTRIC ULCER
     Route: 048
     Dates: start: 20040430, end: 20040611
  3. SELECTOL [Concomitant]
     Indication: HYPERTENSION
     Route: 048
     Dates: start: 19980721, end: 20040611
  4. GASMOTIN [Concomitant]
     Indication: GASTRIC ULCER
     Dosage: DOSE: UNK
     Route: 048
     Dates: start: 20040430, end: 20040611
  5. RADISTMIN-L [Concomitant]
     Indication: HYPERTENSION
     Route: 048
     Dates: start: 20020906, end: 20040611
  6. MUCOSTA [Concomitant]
     Indication: GASTRIC ULCER
     Dosage: DOSE: UNK
     Route: 048
     Dates: start: 20040430, end: 20040611
  7. MACTASE [Concomitant]
     Indication: GASTRIC ULCER
     Dosage: DOSE: UNK
     Route: 048
     Dates: start: 20040430, end: 20040611
  8. BIOFERMIN R [Concomitant]
     Indication: GASTRIC ULCER
     Dosage: DOSE: UNK
     Route: 048
     Dates: start: 20040430, end: 20040611
  9. HUSCODE [Concomitant]
     Indication: BRONCHITIS
     Dosage: DOSE: UNK
     Route: 048
     Dates: start: 20040430, end: 20040611
  10. MUCODYNE [Concomitant]
     Indication: BRONCHITIS
     Dosage: DOSE: UNK
     Route: 048
     Dates: start: 20040430, end: 20040611

REACTIONS (3)
  - ARRHYTHMIA [None]
  - ATRIAL FIBRILLATION [None]
  - HEART RATE INCREASED [None]
